FAERS Safety Report 16079367 (Version 3)
Quarter: 2019Q2

REPORT INFORMATION
  Report Type: Spontaneous
  Country: PT (occurrence: PT)
  Receive Date: 20190315
  Receipt Date: 20190408
  Transmission Date: 20190711
  Serious: Yes (Hospitalization)
  Sender: FDA-Public Use
  Company Number: PT-B.I. PHARMACEUTICALS,INC./RIDGEFIELD-2019-BI-010896

PATIENT
  Age: 70 Year
  Sex: Male

DRUGS (5)
  1. METFORMIN W/VILDAGLIPTIN [Concomitant]
     Active Substance: METFORMIN HYDROCHLORIDE\VILDAGLIPTIN
     Indication: PRODUCT USED FOR UNKNOWN INDICATION
     Route: 065
  2. AMLODIPINE W/PERINDOPRIL [Concomitant]
     Active Substance: AMLODIPINE BESYLATE\PERINDOPRIL
     Indication: PRODUCT USED FOR UNKNOWN INDICATION
     Route: 065
  3. FENOFIBRATE W/PRAVASTATIN [Concomitant]
     Indication: PRODUCT USED FOR UNKNOWN INDICATION
     Route: 065
  4. CLOPIDOGREL [Concomitant]
     Active Substance: CLOPIDOGREL BISULFATE
     Indication: PRODUCT USED FOR UNKNOWN INDICATION
     Route: 065
  5. JARDIANCE [Suspect]
     Active Substance: EMPAGLIFLOZIN
     Indication: TYPE 2 DIABETES MELLITUS
     Route: 065

REACTIONS (16)
  - Vomiting [Unknown]
  - Leukocytosis [Unknown]
  - Renal injury [Unknown]
  - Metabolic acidosis [Unknown]
  - Pyelonephritis acute [Unknown]
  - Glycosuria [Unknown]
  - Nausea [Unknown]
  - Hypokalaemia [Unknown]
  - Euglycaemic diabetic ketoacidosis [Recovering/Resolving]
  - Acetonaemia [Unknown]
  - Food intolerance [Unknown]
  - C-reactive protein increased [Unknown]
  - Ketonuria [Unknown]
  - Dehydration [Unknown]
  - Neutrophilia [Unknown]
  - Hypophosphataemia [Unknown]
